FAERS Safety Report 10274147 (Version 2)
Quarter: 2014Q3

REPORT INFORMATION
  Report Type: Spontaneous
  Country: DE (occurrence: DE)
  Receive Date: 20140702
  Receipt Date: 20140807
  Transmission Date: 20150326
  Serious: Yes (Life-Threatening, Hospitalization)
  Sender: FDA-Public Use
  Company Number: DE-BRISTOL-MYERS SQUIBB COMPANY-21094065

PATIENT
  Age: 73 Year
  Sex: Male

DRUGS (5)
  1. L-THYROXINE [Concomitant]
     Active Substance: LEVOTHYROXINE
  2. LITALIR CAPS 500 MG [Suspect]
     Active Substance: HYDROXYUREA
     Indication: POLYCYTHAEMIA VERA
     Dosage: ONGOING?DAILY DOSE :2 X 500 MG CAPS
  3. ASPIRIN. [Concomitant]
     Active Substance: ASPIRIN
  4. METOPROLOL [Concomitant]
     Active Substance: METOPROLOL
  5. SIMVASTATIN. [Concomitant]
     Active Substance: SIMVASTATIN

REACTIONS (5)
  - Muscle spasms [Unknown]
  - Peroneal nerve palsy [Unknown]
  - Gastric disorder [Unknown]
  - Chronic obstructive pulmonary disease [Recovering/Resolving]
  - Off label use [Unknown]
